FAERS Safety Report 4915972-6 (Version None)
Quarter: 2006Q1

REPORT INFORMATION
  Report Type: 
  Country: None (occurrence: None)
  Receive Date: 20060214
  Receipt Date: 20060127
  Transmission Date: 20060701
  Serious: Yes (Life-Threatening)
  Sender: FDA-Public Use
  Company Number: US200601003413

PATIENT
  Age: 38 Year
  Sex: Female

DRUGS (6)
  1. CYMBALTA [Suspect]
     Indication: DEPRESSION
     Dates: start: 20050408, end: 20060118
  2. AVELOX               /UNK/(MOXIFLOXACIN HYDROCHLORIDE) [Concomitant]
  3. LEVAQUIN [Concomitant]
  4. NEXIUM [Concomitant]
  5. FORADIL [Concomitant]
  6. CELEBREX [Concomitant]

REACTIONS (6)
  - CONDITION AGGRAVATED [None]
  - DEPRESSION [None]
  - DRUG INTERACTION [None]
  - HYPERSENSITIVITY [None]
  - OBSTRUCTIVE AIRWAYS DISORDER [None]
  - SINUSITIS [None]
